FAERS Safety Report 7951527-7 (Version None)
Quarter: 2011Q4

REPORT INFORMATION
  Report Type: 
  Country: None (occurrence: None)
  Receive Date: 20111201
  Receipt Date: 20111123
  Transmission Date: 20120403
  Serious: Yes (Hospitalization)
  Sender: FDA-Public Use
  Company Number: US-JNJFOC-20111110443

PATIENT
  Sex: Female

DRUGS (1)
  1. RISPERDAL CONSTA [Suspect]
     Indication: BIPOLAR DISORDER
     Route: 030
     Dates: start: 20110921, end: 20111101

REACTIONS (5)
  - DRUG INEFFECTIVE [None]
  - AGGRESSION [None]
  - PARANOIA [None]
  - PRODUCT QUALITY ISSUE [None]
  - THERMAL BURN [None]
